FAERS Safety Report 7328173-1 (Version None)
Quarter: 2011Q1

REPORT INFORMATION
  Report Type: 
  Country: None (occurrence: None)
  Receive Date: 20110222
  Receipt Date: 20110207
  Transmission Date: 20110831
  Serious: Yes (Other)
  Sender: FDA-Public Use
  Company Number: 20110077

PATIENT
  Age: 47 Year
  Sex: Female
  Weight: 64.4108 kg

DRUGS (4)
  1. LIDOCAINE 2% [Concomitant]
  2. SALINE SOLUTION 0.9% [Concomitant]
  3. SODIUM BICARBONATE [Suspect]
     Indication: LOCAL ANAESTHESIA
     Dosage: 40 MEQ IN SALINE
     Dates: start: 20100507, end: 20100507
  4. EPINEPHRINE [Concomitant]

REACTIONS (3)
  - CELLULITIS [None]
  - GRANULOMA [None]
  - SKIN INFECTION [None]
